FAERS Safety Report 7617800-7 (Version None)
Quarter: 2011Q3

REPORT INFORMATION
  Report Type: 
  Country: None (occurrence: None)
  Receive Date: 20110718
  Receipt Date: 20110706
  Transmission Date: 20111222
  Serious: Yes (Hospitalization, Disabling)
  Sender: FDA-Public Use
  Company Number: DE-AMGEN-UK284119

PATIENT
  Age: 63 Year
  Sex: Male

DRUGS (11)
  1. PANITUMUMAB [Suspect]
     Indication: SQUAMOUS CELL CARCINOMA
     Dosage: 765 MG, UNK
     Route: 042
     Dates: start: 20080519
  2. PREGABALIN [Concomitant]
     Dosage: 150 MG, UNK
     Route: 048
  3. OMEPRAZOLE [Concomitant]
     Dosage: 20 MG, UNK
     Route: 048
     Dates: start: 20080416, end: 20080531
  4. ENALAPRIL MALEATE [Concomitant]
     Dosage: UNK UNK, UNK
     Route: 048
     Dates: start: 20060401
  5. LORMETAZEPAM [Concomitant]
     Dosage: UNK UNK, UNK
     Route: 048
     Dates: start: 20080513
  6. RADIATION THERAPY [Concomitant]
     Dosage: UNK UNK, UNK
     Route: 065
  7. METAMIZOLE SODIUM [Concomitant]
     Dosage: UNK UNK, UNK
     Route: 048
     Dates: start: 20080514
  8. NIFEDIPINE [Concomitant]
     Dosage: UNK UNK, UNK
     Route: 048
     Dates: start: 20080519
  9. PREDNISOLONE [Concomitant]
     Dosage: UNK UNK, QCYCLE
     Route: 048
     Dates: start: 20080425
  10. SIMVASTATIN [Concomitant]
     Dosage: 10 MG, UNK
     Dates: start: 20070401
  11. CISPLATIN [Concomitant]
     Dosage: 150 MG, UNK
     Route: 042
     Dates: start: 20080519

REACTIONS (2)
  - GLOSSITIS [None]
  - MUCOSAL INFLAMMATION [None]
